FAERS Safety Report 14403429 (Version 1)
Quarter: 2018Q1

REPORT INFORMATION
  Report Type: Spontaneous
  Country: US (occurrence: US)
  Receive Date: 20180116
  Receipt Date: 20180116
  Transmission Date: 20180509
  Serious: Yes (Hospitalization)
  Sender: FDA-Public Use
  Company Number: None

PATIENT
  Age: 84 Year
  Sex: Female

DRUGS (2)
  1. LETAIRIS [Suspect]
     Active Substance: AMBRISENTAN
     Indication: PULMONARY ARTERIAL HYPERTENSION
     Route: 048
     Dates: start: 201105, end: 201712
  2. LETAIRIS [Suspect]
     Active Substance: AMBRISENTAN
     Indication: CONNECTIVE TISSUE DISORDER
     Route: 048
     Dates: start: 201105, end: 201712

REACTIONS (10)
  - Fall [None]
  - Respiratory failure [None]
  - General physical health deterioration [None]
  - Metabolic encephalopathy [None]
  - Therapy cessation [None]
  - Infection [None]
  - Pyrexia [None]
  - Respiratory distress [None]
  - Unresponsive to stimuli [None]
  - Mental status changes [None]

NARRATIVE: CASE EVENT DATE: 20171227
